FAERS Safety Report 19963068 (Version 5)
Quarter: 2022Q1

REPORT INFORMATION
  Report Type: Other
  Country: DE (occurrence: DE)
  Receive Date: 20211018
  Receipt Date: 20220116
  Transmission Date: 20220423
  Serious: Yes (Death, Other)
  Sender: FDA-Public Use
  Company Number: None

PATIENT
  Age: 73 Year
  Sex: Female
  Weight: 81.2 kg

DRUGS (16)
  1. GABAPENTIN [Suspect]
     Active Substance: GABAPENTIN
     Indication: Product used for unknown indication
     Dosage: 300 MILLIGRAM, BID; (AT EVERY MORNING AND BED TIME; 1-0-1)
     Route: 065
     Dates: start: 201403, end: 201505
  2. AMLODIPINE [Suspect]
     Active Substance: AMLODIPINE BESYLATE
     Indication: Product used for unknown indication
     Dosage: 0.5 DOSAGE FORM, BID; 0.5-0-0.5
     Route: 065
     Dates: start: 201309, end: 201505
  3. TORSEMIDE [Suspect]
     Active Substance: TORSEMIDE
     Indication: Product used for unknown indication
     Dosage: 10 MILLIGRAM, EVERY MORNING
     Route: 065
     Dates: start: 201310, end: 201505
  4. ASPIRIN [Suspect]
     Active Substance: ASPIRIN
     Indication: Product used for unknown indication
     Dosage: 100 MILLIGRAM, EVERY MORNING
     Route: 065
     Dates: start: 201308, end: 201505
  5. RAMIPRIL [Suspect]
     Active Substance: RAMIPRIL
     Indication: Product used for unknown indication
     Dosage: 5 MILLIGRAM, BID; (AT MORNING AND BED TIME) 1 - 0 - 1
     Route: 065
     Dates: start: 201308, end: 201505
  6. PANTOPRAZOLE [Suspect]
     Active Substance: PANTOPRAZOLE
     Indication: Product used for unknown indication
     Dosage: 40 MILLIGRAM, EVERY MORNING
     Route: 065
     Dates: start: 201403, end: 201505
  7. SIMVASTATIN [Suspect]
     Active Substance: SIMVASTATIN
     Indication: Product used for unknown indication
     Dosage: 40 MILLIGRAM, AT BED TIME
     Route: 065
     Dates: start: 201401, end: 201505
  8. MOVICOL [Suspect]
     Active Substance: POLYETHYLENE GLYCOL 3350\POTASSIUM CHLORIDE\SODIUM BICARBONATE\SODIUM CHLORIDE
     Indication: Product used for unknown indication
     Dosage: 1 DOSAGE FORM; PER DAY
     Route: 065
     Dates: start: 201308, end: 201505
  9. ACTRAPHANE [Suspect]
     Active Substance: INSULIN HUMAN
     Indication: Type 2 diabetes mellitus
     Dosage: UNK; 18 - 8
     Route: 065
     Dates: start: 201401, end: 201505
  10. BACLOFEN [Suspect]
     Active Substance: BACLOFEN
     Indication: Product used for unknown indication
     Dosage: 62.5 MILLIGRAM; PER DAY 1
     Route: 065
     Dates: start: 201404, end: 201505
  11. BACLOFEN [Suspect]
     Active Substance: BACLOFEN
     Dosage: 25 MILLIGRAM, TID 1 - 0.5 - 1
     Route: 065
     Dates: start: 201404, end: 201505
  12. FENTANYL [Suspect]
     Active Substance: FENTANYL
     Indication: Product used for unknown indication
     Dosage: UNK
     Route: 065
  13. FENTANYL [Suspect]
     Active Substance: FENTANYL
     Dosage: 25 MILLIGRAM; EVERY 3 DAYS
     Route: 065
     Dates: start: 201407, end: 201505
  14. XARELTO [Suspect]
     Active Substance: RIVAROXABAN
     Indication: Product used for unknown indication
     Dosage: 15 MILLIGRAM, EVERY MORNING
     Route: 065
     Dates: start: 201403, end: 201505
  15. FENTANYL CITRATE [Suspect]
     Active Substance: FENTANYL CITRATE
     Indication: Product used for unknown indication
     Dosage: UNK
     Route: 065
  16. FENTANYL CITRATE [Suspect]
     Active Substance: FENTANYL CITRATE
     Dosage: 25 MILLIGRAM; EVERY 3 DAYS
     Route: 065
     Dates: start: 201407, end: 201505

REACTIONS (9)
  - Sepsis [Fatal]
  - Sinusitis [Fatal]
  - Lactic acidosis [Fatal]
  - Dehydration [Fatal]
  - Pneumonia aspiration [Fatal]
  - Renal failure [Fatal]
  - Urosepsis [Fatal]
  - Septic shock [Fatal]
  - Hyperglycaemia [Fatal]

NARRATIVE: CASE EVENT DATE: 20150101
